APPROVED DRUG PRODUCT: CHILDREN'S ZYRTEC HIVES RELIEF
Active Ingredient: CETIRIZINE HYDROCHLORIDE
Strength: 10MG **Federal Register determination that product was not discontinued or withdrawn for safety or effectiveness reasons**
Dosage Form/Route: TABLET, CHEWABLE;ORAL
Application: N021621 | Product #006
Applicant: KENVUE BRANDS LLC
Approved: Nov 16, 2007 | RLD: Yes | RS: No | Type: DISCN